FAERS Safety Report 15463520 (Version 1)
Quarter: 2018Q4

REPORT INFORMATION
  Report Type: Spontaneous
  Country: ZA (occurrence: ZA)
  Receive Date: 20181004
  Receipt Date: 20181004
  Transmission Date: 20190204
  Serious: Yes (Hospitalization)
  Sender: FDA-Public Use
  Company Number: ZA-ASTRAZENECA-2018SF24760

PATIENT
  Sex: Female

DRUGS (6)
  1. TRUSTAN [Suspect]
     Active Substance: ESOMEPRAZOLE
     Route: 048
  2. PREMARIN [Suspect]
     Active Substance: ESTROGENS, CONJUGATED
  3. EUTHYROX [Suspect]
     Active Substance: LEVOTHYROXINE SODIUM
  4. FEMIGEL (ESTRADIOL) [Suspect]
     Active Substance: ESTRADIOL
  5. ELTROXIN [Suspect]
     Active Substance: LEVOTHYROXINE
  6. DORMONOCT [Suspect]
     Active Substance: LOPRAZOLAM

REACTIONS (1)
  - Meniscus injury [Unknown]
